FAERS Safety Report 25397645 (Version 2)
Quarter: 2025Q2

REPORT INFORMATION
  Report Type: Spontaneous
  Country: HR (occurrence: HR)
  Receive Date: 20250604
  Receipt Date: 20250610
  Transmission Date: 20250717
  Serious: Yes (Other)
  Sender: BAYER HEALTHCARE PHARMACEUTICALS INC.
  Company Number: None

PATIENT
  Sex: Female

DRUGS (1)
  1. AVELOX [Suspect]
     Active Substance: MOXIFLOXACIN HYDROCHLORIDE
     Indication: Sinusitis
     Route: 048
     Dates: end: 2008

REACTIONS (7)
  - Arrhythmia [Not Recovered/Not Resolved]
  - Erythema [Unknown]
  - Tremor [Unknown]
  - Panic attack [Unknown]
  - Disorientation [Unknown]
  - Mental disorder [Unknown]
  - Dissociation [Unknown]

NARRATIVE: CASE EVENT DATE: 20080101
